FAERS Safety Report 23964430 (Version 1)
Quarter: 2024Q2

REPORT INFORMATION
  Report Type: Spontaneous
  Country: US (occurrence: US)
  Receive Date: 20240611
  Receipt Date: 20240611
  Transmission Date: 20240716
  Serious: No
  Sender: FDA-Public Use
  Company Number: US-RIGEL Pharmaceuticals, INC-2023FOS000972

PATIENT
  Sex: Female

DRUGS (2)
  1. TAVALISSE [Suspect]
     Active Substance: FOSTAMATINIB
     Indication: Immune thrombocytopenia
     Dosage: 100 MG, BID
     Route: 048
     Dates: start: 2023, end: 20230915
  2. TAVALISSE [Suspect]
     Active Substance: FOSTAMATINIB
     Dosage: UNK
     Route: 048
     Dates: start: 20230919

REACTIONS (10)
  - Migraine [Not Recovered/Not Resolved]
  - Periorbital swelling [Unknown]
  - Nasal inflammation [Unknown]
  - Brain fog [Unknown]
  - Thyroid disorder [Unknown]
  - Somnolence [Unknown]
  - Impaired quality of life [Unknown]
  - Product dose omission issue [Unknown]
  - Rash [Recovered/Resolved]
  - Dizziness [Unknown]

NARRATIVE: CASE EVENT DATE: 20230101
